FAERS Safety Report 10080673 (Version 1)
Quarter: 2014Q2

REPORT INFORMATION
  Report Type: Spontaneous
  Country: GB (occurrence: GB)
  Receive Date: 20140416
  Receipt Date: 20140416
  Transmission Date: 20141212
  Serious: Yes (Other)
  Sender: FDA-Public Use
  Company Number: GB-ACCORD-023070

PATIENT
  Age: 83 Year
  Sex: Female

DRUGS (17)
  1. EUMOVATE [Concomitant]
  2. CLOPIDOGREL [Suspect]
     Indication: MYOCARDIAL INFARCTION
     Route: 048
     Dates: start: 201308
  3. SALAZOPYRIN [Concomitant]
  4. CO-TRIMOXAZOLE [Concomitant]
  5. ISOSORBIDE [Concomitant]
  6. DICLOFENAC [Concomitant]
  7. TRAMADOL [Concomitant]
  8. FOLIC ACID [Concomitant]
  9. IRON [Concomitant]
  10. LEVOTHYROXINE [Concomitant]
  11. LANSOPRAZOLE [Concomitant]
  12. ATORVASTATIN [Concomitant]
  13. NICORANDIL [Concomitant]
  14. PARACETAMOL [Concomitant]
  15. GLYCERYL TRINITRATE [Concomitant]
  16. XARELTO [Suspect]
     Indication: DEEP VEIN THROMBOSIS
     Route: 048
     Dates: start: 201308, end: 20140315
  17. BISOPROLOL [Concomitant]

REACTIONS (1)
  - Hepatic function abnormal [Recovering/Resolving]
